FAERS Safety Report 23977743 (Version 1)
Quarter: 2024Q2

REPORT INFORMATION
  Report Type: Spontaneous
  Country: US (occurrence: None)
  Receive Date: 20240614
  Receipt Date: 20240614
  Transmission Date: 20240716
  Serious: Yes (unspecified)
  Sender: FDA-Public Use
  Company Number: None

PATIENT
  Age: 51 Year
  Sex: Male
  Weight: 97.52 kg

DRUGS (2)
  1. MOUNJARO [Suspect]
     Active Substance: TIRZEPATIDE
     Indication: Type 2 diabetes mellitus
     Dosage: 5 MG SUBCUTANEOUS
     Route: 058
     Dates: start: 20231029, end: 20231115
  2. DULAGLUTIDE [Suspect]
     Active Substance: DULAGLUTIDE

REACTIONS (9)
  - Nausea [None]
  - Eye pain [None]
  - Paraesthesia [None]
  - Weight decreased [None]
  - Hypophagia [None]
  - Therapy cessation [None]
  - Constipation [None]
  - Blood glucose increased [None]
  - Pancreatic disorder [None]

NARRATIVE: CASE EVENT DATE: 20231115
